FAERS Safety Report 8792559 (Version 1)
Quarter: 2012Q4

REPORT INFORMATION
  Report Type: 
  Country: US (occurrence: US)
  Receive Date: 20120918
  Receipt Date: 20120918
  Transmission Date: 20130627
  Serious: Yes (Other)
  Sender: FDA-Public Use
  Company Number: US-ROCHE-702405

PATIENT

DRUGS (6)
  1. MABTHERA [Suspect]
     Indication: B-CELL LYMPHOMA
     Dosage: DOSE: ADMINISTERED ONCE BETWEEN DAYS 7-10), FORM: INFUSION
     Route: 042
  2. METHOTREXATE [Suspect]
     Indication: B-CELL LYMPHOMA
     Dosage: INDUCTION  DOSE 8G/M2 OR 4 G/M2 OVER 6 HOURS ON SINGLE DAY (DAY 1) EVERY 14 DAYS, FORM INFUSION
     Route: 042
  3. METHOTREXATE [Suspect]
     Dosage: 8G/M2 OR 4G/M2 EVERY 14 DAYS, MAINTENANCE DOSE
     Route: 042
  4. FOLINIC ACID [Concomitant]
     Dosage: START 18 HOURS AFTER COMPLETING METHOTREXATE
     Route: 048
  5. DEXAMETHASONE [Concomitant]
     Route: 048
  6. ONDANSETRON [Concomitant]
     Indication: PREMEDICATION

REACTIONS (8)
  - Anaemia [Unknown]
  - Fatigue [Unknown]
  - Hepatotoxicity [Unknown]
  - Hyperglycaemia [Unknown]
  - Neutropenia [Unknown]
  - Renal failure acute [Recovered/Resolved]
  - Thrombophlebitis [Unknown]
  - Nephropathy toxic [Unknown]
